FAERS Safety Report 6620423-X (Version None)
Quarter: 2010Q1

REPORT INFORMATION
  Report Type: 
  Country: None (occurrence: None)
  Receive Date: 20100223
  Receipt Date: 20091217
  Transmission Date: 20100710
  Serious: No
  Sender: FDA-Public Use
  Company Number: 003442

PATIENT
  Sex: Female
  Weight: 65.7 kg

DRUGS (2)
  1. CIMZIA [Suspect]
     Dosage: 400 MG SUBCUTANEOUS
     Route: 058
     Dates: start: 20091028
  2. PENTASA [Concomitant]

REACTIONS (4)
  - CONJUNCTIVITIS INFECTIVE [None]
  - DIARRHOEA [None]
  - DRUG INEFFECTIVE [None]
  - WEIGHT DECREASED [None]
